FAERS Safety Report 10092123 (Version 1)
Quarter: 2014Q2

REPORT INFORMATION
  Report Type: Spontaneous
  Country: US (occurrence: US)
  Receive Date: 20140421
  Receipt Date: 20140421
  Transmission Date: 20141212
  Serious: No
  Sender: FDA-Public Use
  Company Number: US-SANOFI-AVENTIS-2013SA026342

PATIENT
  Age: 79 Year
  Sex: Female
  Weight: 60 kg

DRUGS (4)
  1. ALLEGRA [Suspect]
     Indication: URTICARIA
     Route: 048
     Dates: start: 20130311
  2. ALLEGRA [Suspect]
     Indication: JOINT SWELLING
     Route: 048
     Dates: start: 20130311
  3. CLARITIN [Concomitant]
     Indication: MALAISE
  4. SUDAFED [Concomitant]
     Indication: MALAISE

REACTIONS (5)
  - Feeling abnormal [Recovered/Resolved]
  - Limb discomfort [Not Recovered/Not Resolved]
  - Feeling abnormal [Not Recovered/Not Resolved]
  - Drug ineffective [Unknown]
  - Wrong technique in drug usage process [Unknown]
